FAERS Safety Report 6885115-0 (Version None)
Quarter: 2010Q3

REPORT INFORMATION
  Report Type: 
  Country: None (occurrence: None)
  Receive Date: 20100729
  Receipt Date: 20100729
  Transmission Date: 20110219
  Serious: Yes (Life-Threatening, Hospitalization)
  Sender: FDA-Public Use
  Company Number: None

PATIENT
  Age: 42 Year
  Sex: Female
  Weight: 78.4723 kg

DRUGS (4)
  1. YAZ [Suspect]
     Indication: AFFECTIVE DISORDER
     Dosage: 1 PILL ONCE A DAY PO
     Route: 048
     Dates: start: 20050701, end: 20051001
  2. YAZ [Suspect]
     Indication: HORMONE LEVEL ABNORMAL
     Dosage: 1 PILL ONCE A DAY PO
     Route: 048
     Dates: start: 20050701, end: 20051001
  3. YAZ [Suspect]
     Indication: AFFECTIVE DISORDER
     Dosage: 1 PILL ONCE A DAY PO
     Route: 048
     Dates: start: 20060801, end: 20061001
  4. YAZ [Suspect]
     Indication: HORMONE LEVEL ABNORMAL
     Dosage: 1 PILL ONCE A DAY PO
     Route: 048
     Dates: start: 20060801, end: 20061001

REACTIONS (9)
  - BLOOD DISORDER [None]
  - COUGH [None]
  - DRUG INEFFECTIVE [None]
  - IMPAIRED WORK ABILITY [None]
  - PAIN [None]
  - PULMONARY EMBOLISM [None]
  - PULMONARY FIBROSIS [None]
  - QUALITY OF LIFE DECREASED [None]
  - THROMBOSIS [None]
